FAERS Safety Report 6972580-3 (Version None)
Quarter: 2010Q3

REPORT INFORMATION
  Report Type: 
  Country: None (occurrence: None)
  Receive Date: 20100907
  Receipt Date: 20100831
  Transmission Date: 20110219
  Serious: Yes (Other)
  Sender: FDA-Public Use
  Company Number: 2010MA002241

PATIENT
  Age: 58 Year
  Sex: Female

DRUGS (3)
  1. METOCLOPRAMIDE [Suspect]
     Indication: IMPAIRED GASTRIC EMPTYING
     Dosage: 10 MG;QID;PO
     Route: 048
     Dates: start: 20070317
  2. PREVACID [Concomitant]
  3. NEURONTIN [Concomitant]

REACTIONS (50)
  - ABDOMINAL DISCOMFORT [None]
  - ABDOMINAL PAIN UPPER [None]
  - ACTIVITIES OF DAILY LIVING IMPAIRED [None]
  - AFFECTIVE DISORDER [None]
  - ALOPECIA [None]
  - ANXIETY [None]
  - ARTHRALGIA [None]
  - ARTHROPATHY [None]
  - BACK PAIN [None]
  - BRUXISM [None]
  - CHEST PAIN [None]
  - CHILLS [None]
  - COGNITIVE DISORDER [None]
  - CONDITION AGGRAVATED [None]
  - DEPRESSION [None]
  - DIARRHOEA [None]
  - DRUG INTOLERANCE [None]
  - DYSKINESIA [None]
  - DYSPNOEA [None]
  - EARLY SATIETY [None]
  - EHLERS-DANLOS SYNDROME [None]
  - EMOTIONAL DISTRESS [None]
  - FATIGUE [None]
  - FIBROMYALGIA [None]
  - GASTROOESOPHAGEAL REFLUX DISEASE [None]
  - HEADACHE [None]
  - HOT FLUSH [None]
  - HYPERHIDROSIS [None]
  - HYPERTENSION [None]
  - INSOMNIA [None]
  - MENTAL IMPAIRMENT [None]
  - MIGRAINE [None]
  - MOVEMENT DISORDER [None]
  - MUSCLE SPASMS [None]
  - MUSCLE TWITCHING [None]
  - MUSCULAR WEAKNESS [None]
  - NARCOLEPSY [None]
  - OSTEOARTHRITIS [None]
  - PAIN IN JAW [None]
  - PARAESTHESIA [None]
  - RESTLESSNESS [None]
  - RHINITIS ALLERGIC [None]
  - SLEEP APNOEA SYNDROME [None]
  - SOCIAL PROBLEM [None]
  - STRESS [None]
  - TARDIVE DYSKINESIA [None]
  - TINNITUS [None]
  - TONGUE DISORDER [None]
  - TREMOR [None]
  - WEIGHT DECREASED [None]
